FAERS Safety Report 22157513 (Version 1)
Quarter: 2023Q1

REPORT INFORMATION
  Report Type: Spontaneous
  Country: CA (occurrence: CA)
  Receive Date: 20230330
  Receipt Date: 20230330
  Transmission Date: 20230417
  Serious: Yes (Life-Threatening)
  Sender: FDA-Public Use
  Company Number: CA-BAUSCH-BL-2023-005027

PATIENT
  Age: 18 Month
  Sex: Male

DRUGS (9)
  1. ACYCLOVIR [Suspect]
     Active Substance: ACYCLOVIR
     Indication: Herpes virus infection
     Route: 065
  2. GANCICLOVIR [Suspect]
     Active Substance: GANCICLOVIR
     Indication: Herpes virus infection
     Route: 065
  3. CIDOFOVIR [Suspect]
     Active Substance: CIDOFOVIR
     Indication: Herpes virus infection
     Route: 065
  4. CIDOFOVIR [Suspect]
     Active Substance: CIDOFOVIR
     Route: 065
  5. FOSCARNET [Suspect]
     Active Substance: FOSCARNET
     Indication: Herpes virus infection
     Route: 065
  6. DEXAMETHASONE [Concomitant]
     Active Substance: DEXAMETHASONE
     Indication: Haemophagocytic lymphohistiocytosis
  7. RITUXIMAB [Concomitant]
     Active Substance: RITUXIMAB
     Indication: Haemophagocytic lymphohistiocytosis
  8. IMMUNOGLOBULIN [Concomitant]
     Indication: Haemophagocytic lymphohistiocytosis
     Route: 042
  9. ETOPOSIDE [Concomitant]
     Active Substance: ETOPOSIDE
     Indication: Haemophagocytic lymphohistiocytosis

REACTIONS (1)
  - Therapy non-responder [Unknown]
